FAERS Safety Report 23076436 (Version 2)
Quarter: 2023Q4

REPORT INFORMATION
  Report Type: Report from Study
  Country: US (occurrence: US)
  Receive Date: 20231017
  Receipt Date: 20231023
  Transmission Date: 20240110
  Serious: Yes (Hospitalization)
  Sender: FDA-Public Use
  Company Number: US-Eisai-EC-2023-150559

PATIENT
  Age: 69 Year
  Sex: Male
  Weight: 63.6 kg

DRUGS (18)
  1. LENVATINIB [Suspect]
     Active Substance: LENVATINIB
     Indication: Oesophageal cancer metastatic
     Route: 048
     Dates: start: 20230413, end: 20230928
  2. PEMBROLIZUMAB [Suspect]
     Active Substance: PEMBROLIZUMAB
     Indication: Oesophageal cancer metastatic
     Dates: start: 20230413, end: 20230928
  3. LEUCOVORIN [Suspect]
     Active Substance: LEUCOVORIN\LEUCOVORIN CALCIUM
     Indication: Oesophageal cancer metastatic
     Dosage: DOSE UNKNOWN
     Dates: start: 20230413, end: 20230622
  4. OXALIPLATIN [Suspect]
     Active Substance: OXALIPLATIN
     Indication: Oesophageal cancer metastatic
     Dosage: DOSE UNKNOWN
     Dates: start: 20230413, end: 20230622
  5. FLUOROURACIL [Suspect]
     Active Substance: FLUOROURACIL
     Indication: Oesophageal cancer metastatic
     Dosage: DOSE AND FREQUENCY UNKNOWN
     Route: 040
     Dates: start: 20230413, end: 20230622
  6. FLUOROURACIL [Suspect]
     Active Substance: FLUOROURACIL
     Dosage: DOSE AND FREQUENCY UNKNOWN
     Route: 042
     Dates: start: 20230413, end: 20230624
  7. ROXICODONE [Concomitant]
     Active Substance: OXYCODONE HYDROCHLORIDE
     Dates: start: 20230804
  8. ZOLOFT [Concomitant]
     Active Substance: SERTRALINE HYDROCHLORIDE
     Dates: start: 20230828
  9. LISINOPRIL [Concomitant]
     Active Substance: LISINOPRIL
     Dates: start: 20230730
  10. TYLENOL [Concomitant]
     Active Substance: ACETAMINOPHEN
     Dates: start: 20230818
  11. OXYCONTIN [Concomitant]
     Active Substance: OXYCODONE HYDROCHLORIDE
     Dates: start: 20230914
  12. AUGMENTIN [Concomitant]
     Active Substance: AMOXICILLIN\CLAVULANATE POTASSIUM
     Dates: start: 20230915, end: 20230929
  13. MIRALAX [Concomitant]
     Active Substance: POLYETHYLENE GLYCOL 3350
     Dates: start: 20230817
  14. FAMOTIDINE [Concomitant]
     Active Substance: FAMOTIDINE
     Dates: start: 20230203
  15. ATORVASTATIN [Concomitant]
     Active Substance: ATORVASTATIN
     Dates: start: 20221018
  16. ATIVAN [Concomitant]
     Active Substance: LORAZEPAM
     Dates: start: 20230516
  17. PROCHLORPERAZINE [Concomitant]
     Active Substance: PROCHLORPERAZINE
     Dates: start: 20230411
  18. SUCRALFATE [Concomitant]
     Active Substance: SUCRALFATE
     Dates: start: 20230601

REACTIONS (1)
  - Pneumonia aspiration [Recovering/Resolving]

NARRATIVE: CASE EVENT DATE: 20231006
